FAERS Safety Report 5092549-6 (Version None)
Quarter: 2006Q3

REPORT INFORMATION
  Report Type: 
  Country: None (occurrence: None)
  Receive Date: 20060830
  Receipt Date: 20060823
  Transmission Date: 20061208
  Serious: Yes (Death)
  Sender: FDA-Public Use
  Company Number: FR-JNJFOC-20060101211

PATIENT
  Age: 45 Year
  Sex: Male

DRUGS (3)
  1. RISPERDAL CONSTA [Suspect]
     Indication: SCHIZOPHRENIA
     Route: 030
  2. TERCIAN [Concomitant]
     Dates: end: 20051226
  3. LEXOMIL [Concomitant]
     Dates: end: 20051226

REACTIONS (1)
  - ACUTE MYOCARDIAL INFARCTION [None]
